FAERS Safety Report 21741299 (Version 5)
Quarter: 2023Q1

REPORT INFORMATION
  Report Type: Spontaneous
  Country: US (occurrence: US)
  Receive Date: 20221216
  Receipt Date: 20230306
  Transmission Date: 20230417
  Serious: Yes (Hospitalization, Other)
  Sender: FDA-Public Use
  Company Number: US-PFIZER INC-PV202200124013

PATIENT
  Age: 61 Year
  Sex: Female

DRUGS (1)
  1. IBRANCE [Suspect]
     Active Substance: PALBOCICLIB
     Dosage: 125 MG
     Dates: end: 20230126

REACTIONS (6)
  - Catheter site infection [Unknown]
  - White blood cell count decreased [Unknown]
  - Sinusitis [Unknown]
  - Bronchitis [Unknown]
  - Fatigue [Unknown]
  - Abdominal pain upper [Unknown]
